FAERS Safety Report 8490610 (Version 8)
Quarter: 2013Q3

REPORT INFORMATION
  Report Type: Spontaneous
  Country: TR (occurrence: TR)
  Receive Date: 20120403
  Receipt Date: 20130709
  Transmission Date: 20140515
  Serious: Yes (Hospitalization, Other)
  Sender: FDA-Public Use
  Company Number: TR-AMGEN-TURSP2012019007

PATIENT
  Age: 52 Year
  Sex: Female
  Weight: 90 kg

DRUGS (4)
  1. ENBREL [Suspect]
     Indication: ANKYLOSING SPONDYLITIS
     Dosage: 50 MG, WEEKLY
     Route: 058
     Dates: start: 201106
  2. ENBREL [Suspect]
     Dosage: 25 MG, 2 TIMES/WK
     Route: 058
     Dates: start: 200811, end: 201106
  3. METHOTREXAT /00113801/ [Suspect]
     Indication: ANKYLOSING SPONDYLITIS
     Dosage: WEEKLY 2X2 FOR TWO YEARS TILL MAY2012
     Route: 058
     Dates: end: 2012
  4. INSULIN [Concomitant]
     Indication: DIABETES MELLITUS
     Dosage: 30 IU, 3X/DAY
     Route: 058
     Dates: start: 2008

REACTIONS (18)
  - Dyspnoea [Unknown]
  - Embolism [Recovered/Resolved]
  - Contusion [Recovered/Resolved]
  - Hepatic enzyme abnormal [Recovering/Resolving]
  - Hepatic enzyme increased [Not Recovered/Not Resolved]
  - Syncope [Recovered/Resolved]
  - Cardiomegaly [Not Recovered/Not Resolved]
  - Pyrexia [Not Recovered/Not Resolved]
  - Hypoglycaemia [Recovered/Resolved]
  - Blood pressure increased [Recovered/Resolved]
  - Hepatic infection [Not Recovered/Not Resolved]
  - Face injury [Not Recovered/Not Resolved]
  - Limb injury [Not Recovered/Not Resolved]
  - Pain [Not Recovered/Not Resolved]
  - Swelling [Recovered/Resolved]
  - Fear [Not Recovered/Not Resolved]
  - Blood count abnormal [Not Recovered/Not Resolved]
  - Drug ineffective [Unknown]
